FAERS Safety Report 7333867-8 (Version None)
Quarter: 2011Q1

REPORT INFORMATION
  Report Type: 
  Country: None (occurrence: None)
  Receive Date: 20110307
  Receipt Date: 20110224
  Transmission Date: 20110831
  Serious: Yes (Hospitalization)
  Sender: FDA-Public Use
  Company Number: US-BIOGENIDEC-2011BI002715

PATIENT
  Age: 46 Year
  Sex: Female
  Weight: 117 kg

DRUGS (4)
  1. ARIXTRA [Concomitant]
     Indication: THROMBOSIS
  2. TYSABRI [Suspect]
     Indication: MULTIPLE SCLEROSIS
     Route: 042
     Dates: start: 20091201
  3. COUMADIN [Concomitant]
     Indication: THROMBOSIS
     Route: 048
  4. LOVENOX [Concomitant]
     Indication: THROMBOSIS

REACTIONS (7)
  - NASOPHARYNGITIS [None]
  - SYSTEMIC LUPUS ERYTHEMATOSUS [None]
  - TOXICITY TO VARIOUS AGENTS [None]
  - TOOTH DISORDER [None]
  - RASH [None]
  - FATIGUE [None]
  - ENDOMETRIAL HYPERTROPHY [None]
